FAERS Safety Report 6164007-9 (Version None)
Quarter: 2009Q2

REPORT INFORMATION
  Report Type: 
  Country: None (occurrence: None)
  Receive Date: 20090422
  Receipt Date: 20090409
  Transmission Date: 20091009
  Serious: Yes (Hospitalization)
  Sender: FDA-Public Use
  Company Number: GB-SANOFI-SYNTHELABO-A01200903931

PATIENT
  Age: 6 Month
  Sex: Female

DRUGS (3)
  1. FASTURTEC [Suspect]
     Indication: HYPERKALAEMIA
     Dosage: 1 MG
     Route: 042
     Dates: start: 20090405
  2. CISPLATIN [Concomitant]
     Dosage: UNK
  3. DOXORUBICIN HCL [Concomitant]
     Dosage: UNK

REACTIONS (3)
  - BLOOD POTASSIUM INCREASED [None]
  - BLOOD URIC ACID INCREASED [None]
  - DRUG INEFFECTIVE [None]
